FAERS Safety Report 4633855-6 (Version None)
Quarter: 2005Q1

REPORT INFORMATION
  Report Type: 
  Country: None (occurrence: None)
  Receive Date: 20050325
  Receipt Date: 20041209
  Transmission Date: 20050727
  Serious: No
  Sender: FDA-Public Use
  Company Number: USA041285801

PATIENT
  Age: 78 Year
  Sex: Female

DRUGS (2)
  1. FORTEO [Suspect]
     Indication: OSTEOPOROSIS
     Dates: start: 20041023
  2. ACIPHEX [Concomitant]

REACTIONS (5)
  - DYSPEPSIA [None]
  - FEELING COLD [None]
  - FEELING HOT [None]
  - HOT FLUSH [None]
  - NAUSEA [None]
